FAERS Safety Report 19233631 (Version 1)
Quarter: 2021Q2

REPORT INFORMATION
  Report Type: Spontaneous
  Country: IT (occurrence: IT)
  Receive Date: 20210507
  Receipt Date: 20210507
  Transmission Date: 20210717
  Serious: Yes (Hospitalization, Congenital Anomaly, Other)
  Sender: FDA-Public Use
  Company Number: IT-AMGEN-ITASP2021066455

PATIENT
  Sex: Female
  Weight: 2.55 kg

DRUGS (11)
  1. PREDNISONE. [Suspect]
     Active Substance: PREDNISONE
     Indication: EXPOSURE DURING PREGNANCY
     Route: 064
  2. ALECTINIB. [Suspect]
     Active Substance: ALECTINIB
     Indication: EXPOSURE DURING PREGNANCY
     Dosage: UNK
     Route: 064
  3. XGEVA [Suspect]
     Active Substance: DENOSUMAB
     Indication: EXPOSURE DURING PREGNANCY
     Dosage: UNK
     Route: 064
  4. VITAMIN D3 [Suspect]
     Active Substance: CHOLECALCIFEROL
     Indication: EXPOSURE DURING PREGNANCY
     Dosage: UNK
     Route: 064
  5. CARDIOASPIRIN [Suspect]
     Active Substance: ASPIRIN
     Indication: EXPOSURE DURING PREGNANCY
     Dosage: UNK
     Route: 064
  6. CALCIUM CARBONATE. [Suspect]
     Active Substance: CALCIUM CARBONATE
     Indication: EXPOSURE DURING PREGNANCY
     Dosage: UNK
     Route: 064
  7. FOLIC ACID. [Suspect]
     Active Substance: FOLIC ACID
     Indication: EXPOSURE DURING PREGNANCY
     Dosage: UNK
     Route: 064
  8. BETAMETHASONE. [Suspect]
     Active Substance: BETAMETHASONE
     Indication: EXPOSURE DURING PREGNANCY
     Dosage: UNK
     Route: 064
  9. NADROPARIN [Suspect]
     Active Substance: NADROPARIN
     Indication: EXPOSURE DURING PREGNANCY
     Dosage: UNK
     Route: 064
  10. PANTOPRAZOLE [Suspect]
     Active Substance: PANTOPRAZOLE
     Indication: EXPOSURE DURING PREGNANCY
     Dosage: UNK
     Route: 064
  11. MORPHINE SULFATE. [Suspect]
     Active Substance: MORPHINE SULFATE
     Indication: EXPOSURE DURING PREGNANCY
     Dosage: UNK
     Route: 064

REACTIONS (4)
  - Premature baby [Unknown]
  - Foetal exposure during pregnancy [Unknown]
  - White matter lesion [Unknown]
  - Fistula [Unknown]

NARRATIVE: CASE EVENT DATE: 2018
